FAERS Safety Report 4959565-3 (Version None)
Quarter: 2006Q1

REPORT INFORMATION
  Report Type: 
  Country: None (occurrence: None)
  Receive Date: 20060331
  Receipt Date: 20050919
  Transmission Date: 20060701
  Serious: Yes (Other)
  Sender: FDA-Public Use
  Company Number: US-MERCK-0509USA03007

PATIENT
  Age: 44 Year
  Sex: Female
  Weight: 74 kg

DRUGS (1)
  1. VIOXX [Suspect]
     Indication: SHOULDER PAIN
     Route: 048
     Dates: start: 20000101, end: 20010701

REACTIONS (10)
  - BACK PAIN [None]
  - CARPAL TUNNEL SYNDROME [None]
  - CONJUNCTIVITIS VIRAL [None]
  - HYPERTENSION [None]
  - LACUNAR INFARCTION [None]
  - MIGRAINE [None]
  - MUSCULOSKELETAL CHEST PAIN [None]
  - NAIL INFECTION [None]
  - RHINITIS [None]
  - WRONG TECHNIQUE IN DRUG USAGE PROCESS [None]
